FAERS Safety Report 13046693 (Version 1)
Quarter: 2016Q4

REPORT INFORMATION
  Report Type: Spontaneous
  Country: RU (occurrence: RU)
  Receive Date: 20161220
  Receipt Date: 20161220
  Transmission Date: 20170207
  Serious: Yes (Other)
  Sender: FDA-Public Use
  Company Number: RU-ASTRAZENECA-2016SF32859

PATIENT
  Age: 67 Year
  Sex: Female
  Weight: 92 kg

DRUGS (10)
  1. SOTAHEXAL [Concomitant]
     Active Substance: SOTALOL
  2. PHYSIOTENS [Concomitant]
     Active Substance: MOXONIDINE
  3. CORVALOL [Concomitant]
     Active Substance: BROMISOVAL\PHENOBARBITAL SODIUM
  4. VALOCORDIN [Concomitant]
     Active Substance: BROMISOVAL\HOPS\PHENOBARBITAL
  5. THROMBO ASS [Concomitant]
     Active Substance: ASPIRIN
  6. BRILINTA [Suspect]
     Active Substance: TICAGRELOR
     Indication: STENT PLACEMENT
     Route: 048
  7. VALIDOL [Concomitant]
     Active Substance: MENTHYL ISOVALERATE, (+/-)-
  8. CRESTOR [Concomitant]
     Active Substance: ROSUVASTATIN CALCIUM
  9. CARDIOMAGNYL [Concomitant]
     Active Substance: ASPIRIN\MAGNESIUM HYDROXIDE
  10. L-THYROXIN [Concomitant]
     Active Substance: LEVOTHYROXINE SODIUM

REACTIONS (6)
  - Chest pain [Unknown]
  - Epistaxis [Recovered/Resolved]
  - Product use issue [Unknown]
  - Off label use [Unknown]
  - Rectal haemorrhage [Recovered/Resolved]
  - Gastritis [Unknown]

NARRATIVE: CASE EVENT DATE: 201611
